FAERS Safety Report 4487685-9 (Version None)
Quarter: 2004Q4

REPORT INFORMATION
  Report Type: 
  Country: None (occurrence: None)
  Receive Date: 20041028
  Receipt Date: 20040528
  Transmission Date: 20050328
  Serious: Yes (Death)
  Sender: FDA-Public Use
  Company Number: GB-ABBOTT-04P-167-0263073-00

PATIENT
  Sex: Male
  Weight: 65 kg

DRUGS (9)
  1. CLARITHROMYCIN IV [Suspect]
     Indication: PNEUMONIA
     Route: 042
     Dates: start: 20040528, end: 20040528
  2. CLARITHROMYCIN IV [Suspect]
     Route: 042
     Dates: start: 20040528, end: 20040530
  3. ASPIRIN [Concomitant]
     Indication: DRUG USE FOR UNKNOWN INDICATION
     Route: 048
  4. FUROSEMIDE [Concomitant]
     Indication: DIURETIC THERAPY
     Route: 048
  5. SENNA FRUIT [Concomitant]
     Indication: DRUG USE FOR UNKNOWN INDICATION
     Dosage: NOCTE
     Route: 048
  6. TEMAZEPAM [Concomitant]
     Indication: NIGHT SWEATS
     Dosage: NOCTE
     Route: 048
  7. QUETIAPINE [Concomitant]
     Indication: DEMENTIA
     Route: 048
  8. AMOXICILLIN [Concomitant]
     Indication: PNEUMONIA
     Route: 042
     Dates: start: 20040526, end: 20040529
  9. SENNA [Concomitant]
     Indication: DRUG USE FOR UNKNOWN INDICATION

REACTIONS (6)
  - DEMENTIA [None]
  - MEDICATION ERROR [None]
  - OEDEMA PERIPHERAL [None]
  - PNEUMONIA [None]
  - RENAL IMPAIRMENT [None]
  - SKIN DISCOLOURATION [None]
